FAERS Safety Report 5140036-9 (Version None)
Quarter: 2006Q4

REPORT INFORMATION
  Report Type: 
  Country: None (occurrence: None)
  Receive Date: 20061025
  Receipt Date: 20061025
  Transmission Date: 20070319
  Serious: Yes (Hospitalization)
  Sender: FDA-Public Use
  Company Number: None

PATIENT
  Age: 65 Year
  Sex: Male
  Weight: 96.1626 kg

DRUGS (7)
  1. PIROXICAM [Suspect]
     Indication: PAIN
     Dosage: 20 MG DAILY
     Dates: start: 20060604, end: 20060904
  2. ASPIRIN [Suspect]
     Indication: BLOOD PHOSPHORUS
     Dosage: 81 MG DAILY
     Dates: start: 20050501
  3. ASPIRIN [Suspect]
     Indication: CORONARY ARTERY BYPASS
     Dosage: 81 MG DAILY
     Dates: start: 20050501
  4. ASPIRIN [Suspect]
     Indication: CORONARY ARTERY DISEASE
     Dosage: 81 MG DAILY
     Dates: start: 20050501
  5. CLOPIDOGREL [Suspect]
     Indication: BLOOD PHOSPHORUS
     Dosage: 75 MG DAILY
     Dates: start: 20060501
  6. CLOPIDOGREL [Suspect]
     Indication: CORONARY ARTERY BYPASS
     Dosage: 75 MG DAILY
     Dates: start: 20060501
  7. CLOPIDOGREL [Suspect]
     Indication: CORONARY ARTERY DISEASE
     Dosage: 75 MG DAILY
     Dates: start: 20060501

REACTIONS (4)
  - HYPOTENSION [None]
  - MELAENA [None]
  - NAUSEA [None]
  - SYNCOPE [None]
